FAERS Safety Report 25052563 (Version 1)
Quarter: 2025Q1

REPORT INFORMATION
  Report Type: Spontaneous
  Country: US (occurrence: US)
  Receive Date: 20250307
  Receipt Date: 20250307
  Transmission Date: 20250409
  Serious: No
  Sender: ITALFARMACO SPA
  Company Number: US-ITALFARMACO SPA-2172471

PATIENT
  Age: 21 Year
  Sex: Male
  Weight: 41 kg

DRUGS (1)
  1. DUVYZAT [Suspect]
     Active Substance: GIVINOSTAT
     Dates: start: 20241118

REACTIONS (1)
  - Platelet count decreased [Not Recovered/Not Resolved]
